FAERS Safety Report 5794010-X (Version None)
Quarter: 2008Q2

REPORT INFORMATION
  Report Type: 
  Country: None (occurrence: None)
  Receive Date: 20080627
  Receipt Date: 20080624
  Transmission Date: 20081010
  Serious: Yes (Other)
  Sender: FDA-Public Use
  Company Number: ES-PFIZER INC-2008050565

PATIENT
  Age: 69 Year
  Sex: Female

DRUGS (1)
  1. CARDYL [Suspect]
     Indication: HYPERCHOLESTEROLAEMIA
     Route: 048
     Dates: start: 20060214, end: 20080310

REACTIONS (1)
  - NEUROPATHY PERIPHERAL [None]
